FAERS Safety Report 15634474 (Version 1)
Quarter: 2018Q4

REPORT INFORMATION
  Report Type: Spontaneous
  Country: IT (occurrence: IT)
  Receive Date: 20181119
  Receipt Date: 20181119
  Transmission Date: 20190205
  Serious: Yes (Other)
  Sender: FDA-Public Use
  Company Number: PHHY2018IT154893

PATIENT
  Age: 74 Year
  Sex: Male

DRUGS (1)
  1. DICLOFENAC [Suspect]
     Active Substance: DICLOFENAC
     Indication: HEPATIC CIRRHOSIS
     Dosage: 150 MG, UNK
     Route: 048

REACTIONS (4)
  - Anaemia [Unknown]
  - Product use in unapproved indication [Unknown]
  - Product prescribing issue [Unknown]
  - Melaena [Unknown]
